FAERS Safety Report 16687669 (Version 1)
Quarter: 2019Q4

REPORT INFORMATION
  Report Type: Spontaneous
  Country: US (occurrence: US)
  Receive Date: 20190808
  Receipt Date: 20190808
  Transmission Date: 20200122
  Serious: No
  Sender: FDA-Public Use
  Company Number: None

PATIENT
  Age: 69 Year
  Sex: Male

DRUGS (6)
  1. TACROLIMUS. [Suspect]
     Active Substance: TACROLIMUS
     Route: 048
  2. MYFORTIC [Concomitant]
     Active Substance: MYCOPHENOLATE SODIUM
  3. FOSAMAX [Concomitant]
     Active Substance: ALENDRONATE SODIUM
  4. OMEPRAZOLE. [Concomitant]
     Active Substance: OMEPRAZOLE
  5. GEMFIBROZIL. [Concomitant]
     Active Substance: GEMFIBROZIL
  6. LANTUS [Concomitant]
     Active Substance: INSULIN GLARGINE

REACTIONS (1)
  - Death [None]

NARRATIVE: CASE EVENT DATE: 20190808
